FAERS Safety Report 7463668-1 (Version None)
Quarter: 2011Q2

REPORT INFORMATION
  Report Type: 
  Country: None (occurrence: None)
  Receive Date: 20110506
  Receipt Date: 20110428
  Transmission Date: 20111010
  Serious: Yes (Hospitalization, Disabling, Other)
  Sender: FDA-Public Use
  Company Number: US-MERCK-1012USA01316

PATIENT
  Age: 68 Year
  Sex: Female

DRUGS (3)
  1. FOSAMAX [Suspect]
     Indication: OSTEOPOROSIS
     Route: 048
     Dates: start: 20020101, end: 20070225
  2. FOSAMAX PLUS D [Suspect]
     Indication: OSTEOPOROSIS
     Route: 048
     Dates: start: 20070226, end: 20090501
  3. VITAMINS (UNSPECIFIED) [Concomitant]
     Route: 065

REACTIONS (19)
  - FEMUR FRACTURE [None]
  - ARTHROPATHY [None]
  - SCOLIOSIS [None]
  - RIB FRACTURE [None]
  - MULTIPLE FRACTURES [None]
  - FIBULA FRACTURE [None]
  - TOOTH FRACTURE [None]
  - RHEUMATOID ARTHRITIS [None]
  - ARTHRALGIA [None]
  - ILEUS [None]
  - JOINT EFFUSION [None]
  - OSTEOPOROSIS [None]
  - DIABETES MELLITUS [None]
  - TIBIA FRACTURE [None]
  - GASTROOESOPHAGEAL REFLUX DISEASE [None]
  - BONE DENSITY DECREASED [None]
  - SPINAL OSTEOARTHRITIS [None]
  - ROTATOR CUFF SYNDROME [None]
  - HEPATIC LESION [None]
